FAERS Safety Report 22344688 (Version 1)
Quarter: 2023Q2

REPORT INFORMATION
  Report Type: Spontaneous
  Country: None (occurrence: ES)
  Receive Date: 20230519
  Receipt Date: 20230519
  Transmission Date: 20230721
  Serious: Yes (Hospitalization)
  Sender: FDA-Public Use
  Company Number: ES-B.Braun Medical Inc.-2141712

PATIENT
  Age: 3 Year
  Sex: Female

DRUGS (3)
  1. METRONIDAZOLE [Suspect]
     Active Substance: METRONIDAZOLE
     Indication: Mastoiditis
  2. CLOXACILLIN [Suspect]
     Active Substance: CLOXACILLIN
  3. CEFOTAXIME SODIUM [Suspect]
     Active Substance: CEFOTAXIME SODIUM

REACTIONS (3)
  - Pancytopenia [Recovering/Resolving]
  - Hypertransaminasaemia [Recovering/Resolving]
  - Pyrexia [Recovered/Resolved]
